FAERS Safety Report 14361595 (Version 1)
Quarter: 2018Q1

REPORT INFORMATION
  Report Type: Spontaneous
  Country: CN (occurrence: CN)
  Receive Date: 20180108
  Receipt Date: 20180108
  Transmission Date: 20180509
  Serious: No
  Sender: FDA-Public Use
  Company Number: CN-LUPIN PHARMACEUTICALS INC.-2017-07107

PATIENT
  Age: 62 Year
  Sex: Female

DRUGS (1)
  1. DULOXETINE. [Suspect]
     Active Substance: DULOXETINE
     Indication: SOMATIC SYMPTOM DISORDER
     Dosage: 60 MG, QD
     Route: 065
     Dates: end: 201502

REACTIONS (1)
  - Rapid eye movement sleep behaviour disorder [Recovered/Resolved]
